FAERS Safety Report 5129928-4 (Version None)
Quarter: 2006Q4

REPORT INFORMATION
  Report Type: 
  Country: None (occurrence: None)
  Receive Date: 20061013
  Receipt Date: 20060925
  Transmission Date: 20070319
  Serious: Yes (Other)
  Sender: FDA-Public Use
  Company Number: WAES 0609CR100001

PATIENT
  Age: 31 Day
  Sex: Female

DRUGS (9)
  1. CANCIDAS [Suspect]
     Indication: CANDIDIASIS
     Dosage: 2.2 M G/DAILY INJ
     Dates: start: 20060906
  2. AMIKACIN [Suspect]
     Indication: SEPSIS
     Dosage: 12 MG/DAILY IV
     Route: 042
     Dates: start: 20060925
  3. AMPHOTERICIN B [Concomitant]
  4. BUMETANIDE [Concomitant]
  5. CIPROFLOXACIN HCL [Concomitant]
  6. DOPAMINE HCI [Concomitant]
  7. FLUCONAZOLE [Concomitant]
  8. FUROSEMIDE [Concomitant]
  9. MEROPENEM [Concomitant]

REACTIONS (6)
  - DECREASED ACTIVITY [None]
  - HAEMATOCRIT DECREASED [None]
  - HAEMOGLOBIN DECREASED [None]
  - HYPOTENSION [None]
  - PALLOR [None]
  - SEPSIS [None]
